FAERS Safety Report 18108378 (Version 4)
Quarter: 2020Q4

REPORT INFORMATION
  Report Type: Report from Study
  Country: US (occurrence: US)
  Receive Date: 20200803
  Receipt Date: 20201209
  Transmission Date: 20210113
  Serious: No
  Sender: FDA-Public Use
  Company Number: NVSC2020US210186

PATIENT
  Age: 32 Year
  Sex: Female

DRUGS (3)
  1. MAYZENT [Suspect]
     Active Substance: SIPONIMOD
     Indication: MULTIPLE SCLEROSIS
     Dosage: 0.25 MG, OTHER (TAKE AS DIRECTED ON START PACK, COMPLETE BEFORE STARTING MAINTAINANCE DOSE)
     Route: 048
     Dates: start: 202007
  2. MAYZENT [Suspect]
     Active Substance: SIPONIMOD
     Dosage: 2 MG, QD (TAKE 1 TABLET BY MOUTH ONCE DAILY AFTER COMPLETING THE START PACK)
     Route: 048
  3. MAYZENT [Suspect]
     Active Substance: SIPONIMOD
     Dosage: 2 MG, QD
     Route: 048
     Dates: start: 20200701, end: 20201012

REACTIONS (13)
  - Chest discomfort [Recovering/Resolving]
  - Product dose omission issue [Unknown]
  - Migraine [Unknown]
  - Tinnitus [Unknown]
  - Headache [Unknown]
  - Palpitations [Unknown]
  - Depressed mood [Unknown]
  - Heart rate increased [Unknown]
  - Weight decreased [Unknown]
  - Anxiety [Unknown]
  - Asthma [Unknown]
  - Amnesia [Unknown]
  - Alopecia [Unknown]

NARRATIVE: CASE EVENT DATE: 20201012
